FAERS Safety Report 9412871 (Version 2)
Quarter: 2013Q4

REPORT INFORMATION
  Report Type: Spontaneous
  Country: GB (occurrence: GB)
  Receive Date: 20130722
  Receipt Date: 20131104
  Transmission Date: 20140711
  Serious: Yes (Other)
  Sender: FDA-Public Use
  Company Number: PHHY2013GB076460

PATIENT
  Age: 25 Year
  Sex: Male
  Weight: 76.2 kg

DRUGS (2)
  1. DOXYCYCLINE [Suspect]
     Indication: BACTERIAL INFECTION
     Dosage: 100 MG
     Route: 048
  2. CITALOPRAM [Concomitant]

REACTIONS (5)
  - Headache [Not Recovered/Not Resolved]
  - Malaise [Not Recovered/Not Resolved]
  - Nausea [Not Recovered/Not Resolved]
  - Vomiting [Not Recovered/Not Resolved]
  - Dyspnoea [Not Recovered/Not Resolved]
